FAERS Safety Report 21355472 (Version 1)
Quarter: 2022Q3

REPORT INFORMATION
  Report Type: Spontaneous
  Country: KW (occurrence: KW)
  Receive Date: 20220920
  Receipt Date: 20220920
  Transmission Date: 20221027
  Serious: Yes (Hospitalization, Other)
  Sender: FDA-Public Use
  Company Number: KW-BoehringerIngelheim-2022-BI-193036

PATIENT
  Age: 78 Year

DRUGS (1)
  1. PRADAXA [Suspect]
     Active Substance: DABIGATRAN ETEXILATE MESYLATE
     Indication: Product used for unknown indication
     Dates: start: 2012

REACTIONS (2)
  - Haemorrhage intracranial [Unknown]
  - Blood pressure systolic increased [Unknown]
